FAERS Safety Report 4660020-9 (Version None)
Quarter: 2005Q2

REPORT INFORMATION
  Report Type: 
  Country: None (occurrence: None)
  Receive Date: 20050512
  Receipt Date: 20050503
  Transmission Date: 20051028
  Serious: Yes (Death)
  Sender: FDA-Public Use
  Company Number: GB-BOEHRINGER INGELHEIM PHARMACEUTICALS, INC.-2005-UK-00752UK

PATIENT
  Sex: Male

DRUGS (6)
  1. ATROVENT [Suspect]
  2. AMOXICILLIN [Suspect]
     Route: 042
  3. CLARITHROMYCIN [Suspect]
  4. SALBUTAMOL [Suspect]
  5. CO-DANTHRAMER [Suspect]
  6. PARACETAMOL [Suspect]

REACTIONS (2)
  - BRONCHIAL CARCINOMA [None]
  - PNEUMONIA [None]
